FAERS Safety Report 15095058 (Version 2)
Quarter: 2018Q3

REPORT INFORMATION
  Report Type: Report from Study
  Country: None (occurrence: FR)
  Receive Date: 20180702
  Receipt Date: 20180719
  Transmission Date: 20181010
  Serious: Yes (Other)
  Sender: FDA-Public Use
  Company Number: FR-ABBVIE-18K-056-2405242-00

PATIENT
  Age: 72 Year
  Sex: Male

DRUGS (1)
  1. DUODOPA [Suspect]
     Active Substance: CARBIDOPA\LEVODOPA
     Indication: PARKINSON^S DISEASE
     Route: 050
     Dates: start: 20160501

REACTIONS (5)
  - Temperature intolerance [Unknown]
  - Obstruction [Unknown]
  - Dry mouth [Not Recovered/Not Resolved]
  - Prostate cancer [Not Recovered/Not Resolved]
  - Freezing phenomenon [Not Recovered/Not Resolved]
